FAERS Safety Report 9555956 (Version 1)
Quarter: 2013Q3

REPORT INFORMATION
  Report Type: Spontaneous
  Country: US (occurrence: US)
  Receive Date: 20130926
  Receipt Date: 20130926
  Transmission Date: 20140515
  Serious: Yes (Hospitalization)
  Sender: FDA-Public Use
  Company Number: US-MALLINCKRODT-T201304414

PATIENT
  Age: 10 Year
  Sex: Male
  Weight: 42 kg

DRUGS (3)
  1. OPTIRAY [Suspect]
     Indication: ABDOMEN SCAN
     Dosage: 84 ML, SINGLE
     Route: 042
     Dates: start: 20130916, end: 20130916
  2. NITROUS OXIDE [Concomitant]
     Indication: SEDATION
     Dosage: UNK
     Dates: start: 20130916, end: 20130916
  3. VERSED [Concomitant]
     Indication: SEDATION
     Dosage: UNK
     Dates: start: 20130916, end: 20130916

REACTIONS (3)
  - Oedema peripheral [Not Recovered/Not Resolved]
  - Injection site extravasation [Not Recovered/Not Resolved]
  - Drug administration error [Unknown]
